FAERS Safety Report 9411138 (Version 1)
Quarter: 2013Q3

REPORT INFORMATION
  Report Type: Spontaneous
  Country: FR (occurrence: FR)
  Receive Date: 20130721
  Receipt Date: 20130721
  Transmission Date: 20140515
  Serious: Yes (Other)
  Sender: FDA-Public Use
  Company Number: PHHY2013FR076700

PATIENT
  Age: 61 Year
  Sex: Male

DRUGS (1)
  1. ZOMETA [Suspect]
     Indication: BREAST CANCER METASTATIC
     Dosage: 4 MG/100ML, PER MONTH
     Route: 042
     Dates: start: 201211, end: 201305

REACTIONS (1)
  - Osteonecrosis of jaw [Not Recovered/Not Resolved]
